FAERS Safety Report 20697135 (Version 2)
Quarter: 2022Q2

REPORT INFORMATION
  Report Type: Report from Study
  Country: AU (occurrence: AU)
  Receive Date: 20220411
  Receipt Date: 20220414
  Transmission Date: 20220721
  Serious: Yes (Other)
  Sender: FDA-Public Use
  Company Number: AU-GLAXOSMITHKLINE-AU2022GSK063204

PATIENT

DRUGS (2)
  1. ACITRETIN [Suspect]
     Active Substance: ACITRETIN
     Indication: Prophylactic chemotherapy
     Dosage: 10 MG DAILY
  2. ACITRETIN [Suspect]
     Active Substance: ACITRETIN
     Dosage: 35 MG DAILY

REACTIONS (2)
  - Hallucination, visual [Unknown]
  - Off label use [Unknown]
